FAERS Safety Report 6935749-X (Version None)
Quarter: 2010Q3

REPORT INFORMATION
  Report Type: 
  Country: None (occurrence: None)
  Receive Date: 20100817
  Receipt Date: 20100810
  Transmission Date: 20110219
  Serious: Yes (Other)
  Sender: FDA-Public Use
  Company Number: 2010SP042602

PATIENT
  Age: 44 Year
  Sex: Female
  Weight: 58 kg

DRUGS (1)
  1. CERAZETTE (DESOGESTREL /00754001/) [Suspect]
     Indication: ENDOMETRIOSIS
     Dosage: QD
     Dates: start: 20100617, end: 20100720

REACTIONS (4)
  - BREAST DISORDER [None]
  - MENORRHAGIA [None]
  - MUSCLE SPASMS [None]
  - OVARIAN CYST [None]
